FAERS Safety Report 9022930 (Version 1)
Quarter: 2013Q1

REPORT INFORMATION
  Report Type: Spontaneous
  Country: US (occurrence: US)
  Receive Date: 20130120
  Receipt Date: 20130120
  Transmission Date: 20140127
  Serious: No
  Sender: FDA-Public Use
  Company Number: US-ALLERGAN-1216365US

PATIENT
  Sex: Female

DRUGS (3)
  1. BOTOX COSMETIC [Suspect]
     Indication: SKIN WRINKLING
     Dosage: 50 UNITS, SINGLE
     Route: 030
     Dates: start: 20121018, end: 20121018
  2. BOTOX COSMETIC [Suspect]
     Indication: SKIN WRINKLING
  3. HORMONE REPLACEMENT [Concomitant]
     Indication: HORMONE REPLACEMENT THERAPY
     Dosage: UNK

REACTIONS (3)
  - Visual acuity reduced [Not Recovered/Not Resolved]
  - Eyelid sensory disorder [Not Recovered/Not Resolved]
  - Vision blurred [Not Recovered/Not Resolved]
